FAERS Safety Report 23742157 (Version 1)
Quarter: 2024Q2

REPORT INFORMATION
  Report Type: Spontaneous
  Country: PL (occurrence: PL)
  Receive Date: 20240415
  Receipt Date: 20240415
  Transmission Date: 20240715
  Serious: Yes (Other)
  Sender: FDA-Public Use
  Company Number: PL-STRIDES ARCOLAB LIMITED-2024SP004256

PATIENT
  Age: 45 Year
  Sex: Male

DRUGS (5)
  1. PREDNISOLONE [Suspect]
     Active Substance: PREDNISOLONE
     Indication: Felty^s syndrome
     Dosage: UNK
     Route: 065
  2. CYCLOSPORINE [Suspect]
     Active Substance: CYCLOSPORINE
     Indication: Felty^s syndrome
     Dosage: UNK
     Route: 065
  3. CYCLOSPORINE [Suspect]
     Active Substance: CYCLOSPORINE
     Dosage: 50 MILLIGRAM
     Route: 065
     Dates: start: 201907
  4. METHOTREXATE [Suspect]
     Active Substance: METHOTREXATE
     Indication: Felty^s syndrome
     Dosage: 10 MILLIGRAM PER WEEK
     Route: 065
     Dates: start: 201908
  5. HYDROXYCHLOROQUINE [Suspect]
     Active Substance: HYDROXYCHLOROQUINE
     Indication: Felty^s syndrome
     Dosage: 200 MILLIGRAM, QD
     Route: 065

REACTIONS (2)
  - Drug ineffective [Unknown]
  - Off label use [Unknown]
